FAERS Safety Report 7408695-5 (Version None)
Quarter: 2011Q2

REPORT INFORMATION
  Report Type: 
  Country: None (occurrence: None)
  Receive Date: 20110412
  Receipt Date: 20110407
  Transmission Date: 20111010
  Serious: Yes (Hospitalization)
  Sender: FDA-Public Use
  Company Number: US-BRISTOL-MYERS SQUIBB COMPANY-15658750

PATIENT
  Age: 59 Year
  Sex: Male

DRUGS (1)
  1. ORENCIA [Suspect]

REACTIONS (1)
  - ANGINA PECTORIS [None]
